FAERS Safety Report 9048993 (Version 2)
Quarter: 2013Q2

REPORT INFORMATION
  Report Type: Spontaneous
  Country: US (occurrence: None)
  Receive Date: 20120525
  Receipt Date: 20120827
  Transmission Date: 20140414
  Serious: No
  Sender: FDA-Public Use
  Company Number: 348813

PATIENT
  Sex: Female

DRUGS (2)
  1. VICTOZA [Suspect]
     Indication: PRODUCT USED FOR UNKNOWN INDICATION
     Route: 058
     Dates: start: 201202
  2. METFORMIN (METFORMIN) [Concomitant]

REACTIONS (4)
  - Dysgeusia [None]
  - Nausea [None]
  - Constipation [None]
  - Blood glucose increased [None]
